FAERS Safety Report 22541358 (Version 2)
Quarter: 2023Q2

REPORT INFORMATION
  Report Type: Spontaneous
  Country: FR (occurrence: FR)
  Receive Date: 20230609
  Receipt Date: 20230616
  Transmission Date: 20230721
  Serious: Yes (Other)
  Sender: FDA-Public Use
  Company Number: None

PATIENT
  Age: 74 Year
  Sex: Male
  Weight: 69 kg

DRUGS (1)
  1. LEVOFLOXACIN [Suspect]
     Active Substance: LEVOFLOXACIN
     Indication: Sinusitis
     Dosage: 1 GRAM, QD
     Route: 048
     Dates: start: 20230405, end: 20230405

REACTIONS (2)
  - Angioedema [Recovered/Resolved]
  - Oral lichen planus [Not Recovered/Not Resolved]

NARRATIVE: CASE EVENT DATE: 20230405
